FAERS Safety Report 25795134 (Version 1)
Quarter: 2025Q3

REPORT INFORMATION
  Report Type: Spontaneous
  Country: GB (occurrence: GB)
  Receive Date: 20250912
  Receipt Date: 20250912
  Transmission Date: 20251020
  Serious: Yes (Hospitalization, Other)
  Sender: ADVANZ PHARMA
  Company Number: None

PATIENT

DRUGS (9)
  1. PREDNISOLONE [Suspect]
     Active Substance: PREDNISOLONE
  2. AMLODIPINE [Concomitant]
     Active Substance: AMLODIPINE BESYLATE
  3. ATORVASTATIN [Concomitant]
     Active Substance: ATORVASTATIN
  4. DOCUSATE [Concomitant]
     Active Substance: DOCUSATE
  5. OMEPRAZOLE [Concomitant]
     Active Substance: OMEPRAZOLE
  6. POLYETHYLENE GLYCOLS [Concomitant]
     Active Substance: POLYETHYLENE GLYCOLS
  7. MEBEVERINE [Concomitant]
     Active Substance: MEBEVERINE
  8. QUININE SULFATE [Concomitant]
     Active Substance: QUININE SULFATE
  9. SODIUM ALGINATE [Concomitant]
     Active Substance: SODIUM ALGINATE

REACTIONS (2)
  - Drug-induced liver injury [Unknown]
  - Liver injury [Unknown]
